FAERS Safety Report 5441122-6 (Version None)
Quarter: 2007Q3

REPORT INFORMATION
  Report Type: 
  Country: None (occurrence: None)
  Receive Date: 20070831
  Receipt Date: 20070822
  Transmission Date: 20080115
  Serious: Yes (Other)
  Sender: FDA-Public Use
  Company Number: US-PFIZER INC-2007058885

PATIENT
  Sex: Female
  Weight: 86.2 kg

DRUGS (14)
  1. CHANTIX [Suspect]
     Indication: SMOKING CESSATION THERAPY
  2. INSULIN [Concomitant]
  3. METOCLOPRAMIDE [Concomitant]
  4. PROTONIX [Concomitant]
  5. MIRTAZAPINE [Concomitant]
  6. SEROQUEL [Concomitant]
  7. GEODON [Concomitant]
  8. OXYBUTYNIN CHLORIDE [Concomitant]
  9. KLONOPIN [Concomitant]
  10. OXYCODONE HCL [Concomitant]
  11. HYDROCODONE BITARTRATE [Concomitant]
  12. METHOCARBAMOL [Concomitant]
  13. PROMETHAZINE [Concomitant]
  14. NITROFURANTOIN [Concomitant]

REACTIONS (3)
  - ANURIA [None]
  - BLOOD GLUCOSE INCREASED [None]
  - WEIGHT INCREASED [None]
